FAERS Safety Report 7170429-X (Version None)
Quarter: 2010Q4

REPORT INFORMATION
  Report Type: 
  Country: None (occurrence: None)
  Receive Date: 20101123
  Receipt Date: 20100929
  Transmission Date: 20110411
  Serious: No
  Sender: FDA-Public Use
  Company Number: 019197

PATIENT
  Sex: Male
  Weight: 166 kg

DRUGS (6)
  1. CIMZIA [Suspect]
     Indication: CROHN'S DISEASE
     Dosage: (400 MG 1X/4 WEEKS SUBCUTANEOUS)
     Route: 058
     Dates: start: 20100101
  2. PREDNISONE [Concomitant]
  3. METHADONE [Concomitant]
  4. ROBAXIN [Concomitant]
  5. XANAX [Concomitant]
  6. LEXAPRO [Concomitant]

REACTIONS (4)
  - ASTHENIA [None]
  - DYSPEPSIA [None]
  - INJECTION SITE DISCOLOURATION [None]
  - MUSCLE SPASMS [None]
